FAERS Safety Report 16877780 (Version 1)
Quarter: 2019Q4

REPORT INFORMATION
  Report Type: Report from Study
  Country: US (occurrence: US)
  Receive Date: 20191002
  Receipt Date: 20191002
  Transmission Date: 20200122
  Serious: Yes (Death, Hospitalization, Other)
  Sender: FDA-Public Use
  Company Number: US-PFIZER INC-2019353145

PATIENT
  Age: 54 Year
  Sex: Female

DRUGS (2)
  1. IBRANCE [Suspect]
     Active Substance: PALBOCICLIB
     Dosage: 100 MG, DAILY 21 DAYS ON/7 DAYS OFF
     Route: 048
     Dates: start: 201906, end: 2019
  2. IBRANCE [Suspect]
     Active Substance: PALBOCICLIB
     Indication: BREAST CANCER
     Dosage: 125 MG, 21 DAYS ON/7 DAYS OFF
     Route: 048
     Dates: start: 201810

REACTIONS (13)
  - Death [Fatal]
  - Ascites [Unknown]
  - Sepsis [Unknown]
  - Dry mouth [Unknown]
  - Chapped lips [Unknown]
  - Infection [Unknown]
  - Lip swelling [Unknown]
  - Condition aggravated [Unknown]
  - Full blood count decreased [Unknown]
  - Nausea [Unknown]
  - Throat irritation [Unknown]
  - Dysphagia [Unknown]
  - Oesophageal pain [Unknown]

NARRATIVE: CASE EVENT DATE: 20190918
